FAERS Safety Report 23321150 (Version 3)
Quarter: 2023Q4

REPORT INFORMATION
  Report Type: Spontaneous
  Country: DE (occurrence: DE)
  Receive Date: 20231220
  Receipt Date: 20231227
  Transmission Date: 20240110
  Serious: Yes (Other)
  Sender: FDA-Public Use
  Company Number: DE-SA-SAC20231219000853

PATIENT
  Sex: Female

DRUGS (4)
  1. DUPIXENT [Suspect]
     Active Substance: DUPILUMAB
     Indication: Chronic rhinosinusitis with nasal polyps
     Dosage: 300 MG, QOW
     Route: 058
     Dates: start: 20230908, end: 202312
  2. NASONEX [Concomitant]
     Active Substance: MOMETASONE FUROATE
     Indication: Chronic rhinosinusitis with nasal polyps
     Dosage: 1 DF, QD
     Route: 045
  3. SINGULAIR [Concomitant]
     Active Substance: MONTELUKAST SODIUM
  4. PIROXICAM [Concomitant]
     Active Substance: PIROXICAM
     Indication: Asthma
     Dosage: 1 - 2 X DAILY

REACTIONS (6)
  - Dupuytren^s contracture [Unknown]
  - Condition aggravated [Unknown]
  - Cough [Unknown]
  - Tendon disorder [Unknown]
  - Arthropathy [Unknown]
  - Therapeutic response decreased [Unknown]

NARRATIVE: CASE EVENT DATE: 20230101
